FAERS Safety Report 6450713-5 (Version None)
Quarter: 2009Q4

REPORT INFORMATION
  Report Type: 
  Country: None (occurrence: None)
  Receive Date: 20091120
  Receipt Date: 20091120
  Transmission Date: 20100525
  Serious: Yes (Other)
  Sender: FDA-Public Use
  Company Number: None

PATIENT
  Age: 6 Year
  Sex: Male
  Weight: 35.8342 kg

DRUGS (2)
  1. ORAL FLUOXETINE [Suspect]
     Indication: ANXIETY
     Dosage: 5 ML DAILY PO
     Route: 048
     Dates: start: 20091012, end: 20091118
  2. VALIUM [Suspect]
     Indication: SEDATION
     Dosage: UNKNOWN ONE TIME PO
     Route: 048
     Dates: start: 20091118, end: 20091118

REACTIONS (6)
  - ABNORMAL BEHAVIOUR [None]
  - AGGRESSION [None]
  - AGITATION [None]
  - HOMICIDAL IDEATION [None]
  - NONSPECIFIC REACTION [None]
  - SCREAMING [None]
